FAERS Safety Report 7362423-0 (Version None)
Quarter: 2011Q1

REPORT INFORMATION
  Report Type: 
  Country: None (occurrence: None)
  Receive Date: 20110318
  Receipt Date: 20110314
  Transmission Date: 20110831
  Serious: Yes (Other)
  Sender: FDA-Public Use
  Company Number: US-NAPPMUNDI-GBR-2011-0007894

PATIENT
  Age: 24 Year
  Sex: Male
  Weight: 77 kg

DRUGS (6)
  1. HYDROCODONE BITARTRATE AND ACETAMINOPHEN [Concomitant]
     Dosage: 5 MG, Q4H
  2. TRAMADOL HCL [Concomitant]
     Dosage: 50 MG, QID
  3. GABAPENTIN [Concomitant]
     Dosage: 400 MG, QID
  4. LIDOCAINE [Concomitant]
     Dosage: 2 PATCH, DAILY
  5. MORPHINE SULFATE [Suspect]
     Indication: PAIN
     Dosage: 150 MG, BID
  6. NAPROXEN [Concomitant]
     Dosage: 250 MG, TID

REACTIONS (2)
  - BLOOD PRESSURE ABNORMAL [None]
  - INADEQUATE ANALGESIA [None]
